FAERS Safety Report 8329775-6 (Version None)
Quarter: 2012Q2

REPORT INFORMATION
  Report Type: 
  Country: None (occurrence: None)
  Receive Date: 20120502
  Receipt Date: 20120425
  Transmission Date: 20120825
  Serious: Yes (Other)
  Sender: FDA-Public Use
  Company Number: GB-AMGEN-GBRSP2012026249

PATIENT

DRUGS (1)
  1. NEUPOGEN [Suspect]
     Indication: ISCHAEMIC STROKE
     Dosage: 10 MUG/KG, UNK
     Route: 058

REACTIONS (5)
  - OBSTRUCTION [None]
  - RENAL FAILURE ACUTE [None]
  - ACUTE MYOCARDIAL INFARCTION [None]
  - PSYCHOTIC DISORDER [None]
  - URINARY TRACT INFECTION [None]
